FAERS Safety Report 6370203-8 (Version None)
Quarter: 2009Q3

REPORT INFORMATION
  Report Type: 
  Country: None (occurrence: None)
  Receive Date: 20090921
  Receipt Date: 20090921
  Transmission Date: 20100115
  Serious: Yes (Other)
  Sender: FDA-Public Use
  Company Number: None

PATIENT
  Sex: Female
  Weight: 57.1532 kg

DRUGS (1)
  1. ELMIRON [Suspect]
     Indication: BLADDER DISORDER
     Dosage: 2 CAPS 2 X DAILY
     Dates: start: 20090608, end: 20090815

REACTIONS (2)
  - DRY EYE [None]
  - VISUAL ACUITY REDUCED [None]
